FAERS Safety Report 13703513 (Version 1)
Quarter: 2017Q2

REPORT INFORMATION
  Report Type: Report from Study
  Country: None (occurrence: US)
  Receive Date: 20170629
  Receipt Date: 20170629
  Transmission Date: 20170830
  Serious: Yes (Hospitalization, Other)
  Sender: FDA-Public Use
  Company Number: US-ABBVIE-17P-163-2015497-00

PATIENT
  Age: 17 Year
  Sex: Male

DRUGS (5)
  1. METHOTREXATE. [Concomitant]
     Active Substance: METHOTREXATE
     Indication: JUVENILE IDIOPATHIC ARTHRITIS
     Dates: start: 20120812, end: 201407
  2. HUMIRA [Suspect]
     Active Substance: ADALIMUMAB
     Indication: JUVENILE IDIOPATHIC ARTHRITIS
     Route: 058
     Dates: start: 20121214, end: 20121214
  3. METHOTREXATE. [Concomitant]
     Active Substance: METHOTREXATE
     Dates: start: 201407
  4. FELDENE [Concomitant]
     Active Substance: PIROXICAM
     Indication: JUVENILE IDIOPATHIC ARTHRITIS
     Dates: start: 20130202
  5. HUMIRA [Suspect]
     Active Substance: ADALIMUMAB
     Route: 058
     Dates: start: 20130201

REACTIONS (6)
  - Otitis media [Recovered/Resolved]
  - Facial paralysis [Recovered/Resolved]
  - Mastoiditis [Recovered/Resolved]
  - Mastoiditis [Recovered/Resolved]
  - Ear infection [Recovered/Resolved]
  - Herpangina [Recovered/Resolved]

NARRATIVE: CASE EVENT DATE: 20160926
